FAERS Safety Report 5315718-6 (Version None)
Quarter: 2007Q2

REPORT INFORMATION
  Report Type: 
  Country: None (occurrence: None)
  Receive Date: 20070503
  Receipt Date: 20070418
  Transmission Date: 20071010
  Serious: Yes (Death)
  Sender: FDA-Public Use
  Company Number: DE-PURDUE-DEU_2007_0003269

PATIENT
  Age: 82 Year
  Sex: Male

DRUGS (1)
  1. OXYGESIC 20 MG [Suspect]
     Indication: CANCER PAIN
     Route: 048

REACTIONS (2)
  - INTENTIONAL OVERDOSE [None]
  - SUICIDAL IDEATION [None]
